FAERS Safety Report 21190310 (Version 1)
Quarter: 2022Q3

REPORT INFORMATION
  Report Type: Spontaneous
  Country: US (occurrence: None)
  Receive Date: 20220809
  Receipt Date: 20220809
  Transmission Date: 20221026
  Serious: No
  Sender: FDA-Public Use
  Company Number: None

PATIENT
  Sex: Female

DRUGS (1)
  1. HUMIRA [Suspect]
     Active Substance: ADALIMUMAB
     Indication: Hidradenitis
     Dosage: FREQUENCY : MONTHLY;?INJECT 2 PENS (160MG) UNDER THE SKIN ON DAY 1, THEN L PEN {80MG) ON DAY 15, THE
     Route: 058
     Dates: start: 20220719

REACTIONS (3)
  - Drug ineffective [None]
  - Fatigue [None]
  - Fatigue [None]
